FAERS Safety Report 18506612 (Version 4)
Quarter: 2021Q1

REPORT INFORMATION
  Report Type: Report from Study
  Country: US (occurrence: US)
  Receive Date: 20201116
  Receipt Date: 20210319
  Transmission Date: 20210419
  Serious: Yes (Other)
  Sender: FDA-Public Use
  Company Number: US-PFIZER INC-2020282076

PATIENT
  Age: 62 Year
  Sex: Female

DRUGS (3)
  1. IBRANCE [Suspect]
     Active Substance: PALBOCICLIB
     Dosage: 100 MG, CYCLIC (ONCE DAILY FOR 21 DAYS ON/7 DAYS OFF)
     Route: 048
     Dates: start: 202011
  2. IBRANCE [Suspect]
     Active Substance: PALBOCICLIB
     Dosage: 125 MG, CYCLIC (DAILY, 21 DAYS ON, 7 DAYS OFF)
     Route: 048
     Dates: start: 20200721
  3. IBRANCE [Suspect]
     Active Substance: PALBOCICLIB
     Indication: BREAST CANCER FEMALE
     Dosage: UNK, CYCLIC (21 DAYS ON, 7 DAYS OFF)
     Dates: start: 2015

REACTIONS (11)
  - Haematochezia [Unknown]
  - Urinary tract infection [Unknown]
  - Neoplasm progression [Unknown]
  - Dizziness [Unknown]
  - White blood cell count decreased [Unknown]
  - Dyspnoea [Recovered/Resolved]
  - Urine odour abnormal [Unknown]
  - Hot flush [Unknown]
  - Syncope [Unknown]
  - Fatigue [Unknown]
  - Diarrhoea [Recovering/Resolving]

NARRATIVE: CASE EVENT DATE: 2015
